FAERS Safety Report 23711847 (Version 2)
Quarter: 2024Q4

REPORT INFORMATION
  Report Type: Spontaneous
  Country: MM (occurrence: MM)
  Receive Date: 20240405
  Receipt Date: 20241018
  Transmission Date: 20250115
  Serious: No
  Sender: ROCHE
  Company Number: MM-ROCHE-3528480

PATIENT
  Age: 15 Year
  Sex: Male

DRUGS (2)
  1. MABTHERA [Suspect]
     Active Substance: RITUXIMAB
     Indication: Soft tissue sarcoma
     Route: 042
     Dates: start: 20240315
  2. MABTHERA [Suspect]
     Active Substance: RITUXIMAB
     Indication: Gastrointestinal stromal tumour
     Route: 042
     Dates: start: 20240315

REACTIONS (2)
  - Off label use [Unknown]
  - No adverse event [Unknown]
